FAERS Safety Report 13870218 (Version 4)
Quarter: 2018Q1

REPORT INFORMATION
  Report Type: Report from Study
  Country: US (occurrence: BR)
  Receive Date: 20170815
  Receipt Date: 20180218
  Transmission Date: 20180508
  Serious: Yes (Life-Threatening, Hospitalization, Other)
  Sender: FDA-Public Use
  Company Number: US-SUNOVION-2017SUN003575

PATIENT
  Sex: Female
  Weight: 125 kg

DRUGS (7)
  1. TRAMAL [Concomitant]
     Active Substance: TRAMADOL
     Dosage: UNK
  2. BAMIFIX [Concomitant]
     Active Substance: BAMIFYLLINE HYDROCHLORIDE
     Dosage: 600 MG, UNK
     Dates: start: 201707
  3. INDACATEROL AND GLYCOPYRROLATE [Suspect]
     Active Substance: GLYCOPYRROLATE\INDACATEROL MALEATE
     Indication: CHRONIC OBSTRUCTIVE PULMONARY DISEASE
     Dosage: 1 DF, QD
     Route: 055
     Dates: start: 201707
  4. SPIRIVA [Concomitant]
     Active Substance: TIOTROPIUM BROMIDE MONOHYDRATE
  5. MULTI VITAMIN [Concomitant]
     Active Substance: VITAMINS
     Dosage: UNK
  6. FLUIMICIL [Concomitant]
     Active Substance: ACETYLCYSTEINE
     Dosage: UNK
  7. SPIRONOLACTONE. [Concomitant]
     Active Substance: SPIRONOLACTONE
     Dosage: 100 MG, UNK

REACTIONS (11)
  - Coma [Unknown]
  - Chronic obstructive pulmonary disease [Recovering/Resolving]
  - Mobility decreased [Recovering/Resolving]
  - Speech disorder [Unknown]
  - Feeling abnormal [Recovering/Resolving]
  - Oxygen saturation decreased [Unknown]
  - Weight decreased [Unknown]
  - Malaise [Unknown]
  - Fatigue [Recovering/Resolving]
  - Syncope [Unknown]
  - Sleep disorder [Unknown]
